FAERS Safety Report 8097063-1 (Version None)
Quarter: 2012Q1

REPORT INFORMATION
  Report Type: 
  Country: None (occurrence: None)
  Receive Date: 20120131
  Receipt Date: 20120124
  Transmission Date: 20120608
  Serious: No
  Sender: FDA-Public Use
  Company Number: US-B.I. PHARMACEUTICALS,INC./RIDGEFIELD-2012-BP-01430BP

PATIENT
  Age: 79 Year
  Sex: Female

DRUGS (9)
  1. HCTZ/VALSARTAN [Concomitant]
     Indication: HYPERTENSION
     Route: 048
  2. EVISTA [Concomitant]
     Indication: OSTEOPOROSIS
     Route: 048
  3. VITAMIN D [Concomitant]
     Indication: SUPPLEMENTATION THERAPY
     Route: 048
  4. METOPROLOL TARTRATE [Concomitant]
     Indication: HYPERTENSION
     Route: 048
  5. MULTI-VITAMIN [Concomitant]
     Indication: SUPPLEMENTATION THERAPY
     Route: 048
  6. GLUCOSAMINE/CHONDROITIN [Concomitant]
     Indication: OSTEOARTHRITIS
     Route: 048
  7. VICODIN [Concomitant]
     Indication: OSTEOARTHRITIS
     Route: 048
  8. ZANTAC 75 [Suspect]
     Indication: DYSPEPSIA
     Route: 048
     Dates: start: 20120122
  9. LEVOTHYROXINE SODIUM [Concomitant]
     Indication: HYPOTHYROIDISM
     Route: 048

REACTIONS (2)
  - ABDOMINAL PAIN UPPER [None]
  - FAECES DISCOLOURED [None]
